FAERS Safety Report 18607156 (Version 7)
Quarter: 2021Q4

REPORT INFORMATION
  Report Type: Report from Study
  Country: BR (occurrence: BR)
  Receive Date: 20201211
  Receipt Date: 20211125
  Transmission Date: 20220303
  Serious: Yes (Other)
  Sender: FDA-Public Use
  Company Number: BR-TAKEDA-BR202033889

PATIENT
  Age: 10 Year
  Sex: Male
  Weight: 41 kg

DRUGS (7)
  1. IDURSULFASE [Suspect]
     Active Substance: IDURSULFASE
     Indication: Mucopolysaccharidosis II
     Dosage: 2 DOSAGE FORM, 1/WEEK
     Route: 042
     Dates: start: 20200916
  2. IDURSULFASE [Suspect]
     Active Substance: IDURSULFASE
     Dosage: UNK, 1/WEEK
     Route: 042
     Dates: start: 202009
  3. IDURSULFASE [Suspect]
     Active Substance: IDURSULFASE
     Dosage: 3 DOSAGE FORM, 1/WEEK
     Route: 042
  4. IDURSULFASE [Suspect]
     Active Substance: IDURSULFASE
     Dosage: 4 DOSAGE FORM, 1/WEEK
     Route: 042
  5. IDURSULFASE [Suspect]
     Active Substance: IDURSULFASE
     Dosage: 7 DOSAGE FORM, EVERY 15 DAYS
     Route: 042
     Dates: start: 202010
  6. INFLUENZA VIRUS VACCINE [Suspect]
     Active Substance: INFLUENZA VIRUS VACCINE
     Indication: Product used for unknown indication
     Dosage: UNK
     Route: 065
     Dates: start: 20210623
  7. HUNTERASE [Concomitant]
     Indication: Product used for unknown indication
     Route: 065

REACTIONS (17)
  - Suspected COVID-19 [Unknown]
  - Vaccination complication [Recovering/Resolving]
  - Influenza [Recovered/Resolved]
  - Insomnia [Unknown]
  - Weight fluctuation [Unknown]
  - Underdose [Unknown]
  - Fear of injection [Unknown]
  - Psychological trauma [Unknown]
  - Poor venous access [Unknown]
  - Panic reaction [Unknown]
  - Off label use [Unknown]
  - Medication error [Unknown]
  - Therapy interrupted [Unknown]
  - Product dose omission issue [Unknown]
  - Inappropriate schedule of product administration [Unknown]
  - Product availability issue [Unknown]
  - Incorrect dose administered [Unknown]

NARRATIVE: CASE EVENT DATE: 20201029
